FAERS Safety Report 12728218 (Version 5)
Quarter: 2016Q4

REPORT INFORMATION
  Report Type: Report from Study
  Country: US (occurrence: US)
  Receive Date: 20160909
  Receipt Date: 20161024
  Transmission Date: 20170207
  Serious: Yes (Death, Life-Threatening, Hospitalization, Other)
  Sender: FDA-Public Use
  Company Number: US-GILEAD-2016-0232348

PATIENT
  Age: 60 Year
  Sex: Male
  Weight: 82.54 kg

DRUGS (9)
  1. AMBRISENTAN [Suspect]
     Active Substance: AMBRISENTAN
     Indication: SARCOIDOSIS
  2. SILDENAFIL. [Concomitant]
     Active Substance: SILDENAFIL
  3. CARVEDILOL. [Concomitant]
     Active Substance: CARVEDILOL
  4. WARFARIN [Concomitant]
     Active Substance: WARFARIN
  5. LASIX [Concomitant]
     Active Substance: FUROSEMIDE
  6. TRAZODONE [Concomitant]
     Active Substance: TRAZODONE HYDROCHLORIDE
  7. LIPITOR [Concomitant]
     Active Substance: ATORVASTATIN CALCIUM
  8. AMBRISENTAN [Suspect]
     Active Substance: AMBRISENTAN
     Indication: PULMONARY HYPERTENSION
     Dosage: 5 MG, QD
     Route: 065
     Dates: start: 20150722
  9. COREG [Concomitant]
     Active Substance: CARVEDILOL

REACTIONS (8)
  - Sepsis [Fatal]
  - Fall [Not Recovered/Not Resolved]
  - Sarcoidosis [Fatal]
  - Respiratory failure [Fatal]
  - Drug dose omission [Not Recovered/Not Resolved]
  - Pulmonary hypertension [Fatal]
  - Mitral valve incompetence [Fatal]
  - Cardioversion [Not Recovered/Not Resolved]
